FAERS Safety Report 6085549-0 (Version None)
Quarter: 2009Q1

REPORT INFORMATION
  Report Type: 
  Country: None (occurrence: None)
  Receive Date: 20090220
  Receipt Date: 20090210
  Transmission Date: 20090719
  Serious: Yes (Life-Threatening)
  Sender: FDA-Public Use
  Company Number: IT-PFIZER INC-2009166323

PATIENT

DRUGS (1)
  1. UNASYN [Suspect]
     Dosage: UNK
     Route: 042

REACTIONS (3)
  - ERYTHEMA [None]
  - HYPOTENSION [None]
  - OEDEMA MOUTH [None]
